FAERS Safety Report 9549484 (Version 1)
Quarter: 2013Q3

REPORT INFORMATION
  Report Type: Spontaneous
  Country: FR (occurrence: None)
  Receive Date: 20130919
  Receipt Date: 20130919
  Transmission Date: 20140515
  Serious: Yes (Other)
  Sender: FDA-Public Use
  Company Number: FR-ZYDUS-002234

PATIENT
  Age: 84 Year
  Sex: Male

DRUGS (1)
  1. PRAMIPEXOLE (PRAMIPEXOLE) [Suspect]

REACTIONS (4)
  - Major depression [None]
  - Impulse-control disorder [None]
  - Restless legs syndrome [None]
  - Condition aggravated [None]
